FAERS Safety Report 10163126 (Version 2)
Quarter: 2014Q2

REPORT INFORMATION
  Report Type: Report from Study
  Country: US (occurrence: US)
  Receive Date: 20140509
  Receipt Date: 20140509
  Transmission Date: 20141212
  Serious: No
  Sender: FDA-Public Use
  Company Number: PHEH2013US019631

PATIENT
  Sex: Male

DRUGS (9)
  1. TASIGNA [Suspect]
     Dosage: 400 MG, BID
     Route: 048
  2. DIVALPROEX [Concomitant]
     Dosage: 500 MG, QD
  3. RISPERIDONE [Concomitant]
     Dosage: 2 MG, QD
  4. CLONAZEPAM [Concomitant]
     Dosage: 2 MG, QD
  5. ATENOLOL [Concomitant]
     Dosage: 50 MG, QD
  6. ATORVASTATIN [Concomitant]
     Dosage: 10 MG, QD
  7. MULTI-VIT [Concomitant]
     Dosage: ONE PER DAY
  8. ALLEGRA [Concomitant]
     Dosage: ONE PER DAY
  9. DOXYCYCLIN//DOXYCYCLINE MONOHYDRATE [Concomitant]
     Dosage: 100 MG, BID

REACTIONS (3)
  - White blood cell count increased [Unknown]
  - Constipation [Unknown]
  - Product packaging issue [Unknown]
